FAERS Safety Report 13721302 (Version 1)
Quarter: 2017Q3

REPORT INFORMATION
  Report Type: Spontaneous
  Country: FR (occurrence: FR)
  Receive Date: 20170706
  Receipt Date: 20170706
  Transmission Date: 20171127
  Serious: Yes (Other)
  Sender: FDA-Public Use
  Company Number: FR-BAYER-2017-126996

PATIENT
  Sex: Female

DRUGS (1)
  1. MIRENA [Suspect]
     Active Substance: LEVONORGESTREL
     Indication: CONTRACEPTION
     Dosage: 20 MCG/24HR, CONT
     Route: 015
     Dates: start: 20150129, end: 20170609

REACTIONS (9)
  - Abdominal distension [Recovering/Resolving]
  - Weight increased [Recovering/Resolving]
  - Nervousness [Recovering/Resolving]
  - Libido decreased [Recovering/Resolving]
  - Galactorrhoea [Recovering/Resolving]
  - Pruritus [Recovering/Resolving]
  - Back pain [Recovered/Resolved]
  - Headache [Recovering/Resolving]
  - Breast pain [Recovering/Resolving]
